FAERS Safety Report 25148785 (Version 1)
Quarter: 2025Q2

REPORT INFORMATION
  Report Type: Spontaneous
  Country: US (occurrence: US)
  Receive Date: 20250402
  Receipt Date: 20250402
  Transmission Date: 20250716
  Serious: Yes (Hospitalization, Other)
  Sender: ALEMBIC
  Company Number: US-ALEMBIC PHARMACUETICALS LIMITED-2025SCAL000264

PATIENT

DRUGS (1)
  1. FLUOROURACIL [Suspect]
     Active Substance: FLUOROURACIL
     Indication: Small intestine adenocarcinoma
     Route: 065

REACTIONS (8)
  - Cardiomyopathy acute [Recovering/Resolving]
  - Arteriospasm coronary [Recovering/Resolving]
  - Chest pain [Recovering/Resolving]
  - Ventricular hypokinesia [Recovering/Resolving]
  - Ejection fraction decreased [Recovering/Resolving]
  - Troponin increased [Recovering/Resolving]
  - Electrocardiogram ST segment elevation [Recovering/Resolving]
  - Cardiotoxicity [Recovering/Resolving]
